FAERS Safety Report 8462532-9 (Version None)
Quarter: 2012Q2

REPORT INFORMATION
  Report Type: 
  Country: None (occurrence: None)
  Receive Date: 20120607
  Receipt Date: 20120522
  Transmission Date: 20120825
  Serious: Yes (Other)
  Sender: FDA-Public Use
  Company Number: 2012032559

PATIENT
  Age: 69 Year
  Sex: Male

DRUGS (2)
  1. CARIMUNE [Suspect]
     Dosage: SEE IMAGE: INTRAVENOUS (NOT OTHERWISE SPECIFIED)
     Route: 042
  2. PREDNISONE TAB [Concomitant]

REACTIONS (1)
  - ANAPHYLACTIC REACTION [None]
